FAERS Safety Report 21407054 (Version 2)
Quarter: 2023Q2

REPORT INFORMATION
  Report Type: Spontaneous
  Country: US (occurrence: US)
  Receive Date: 20221004
  Receipt Date: 20230509
  Transmission Date: 20230722
  Serious: Yes (Other)
  Sender: FDA-Public Use
  Company Number: US-TORRENT-00012022

PATIENT
  Age: 58 Year
  Sex: Female

DRUGS (1)
  1. MOXIFLOXACIN [Suspect]
     Active Substance: MOXIFLOXACIN
     Indication: Persistent corneal epithelial defect
     Dosage: 0.5% 4 TIMES DAILY
     Route: 061

REACTIONS (3)
  - Corneal oedema [Recovered/Resolved]
  - Iridocyclitis [Recovered/Resolved]
  - Condition aggravated [Recovered/Resolved]
